FAERS Safety Report 8902333 (Version 2)
Quarter: 2012Q4

REPORT INFORMATION
  Report Type: 
  Country: JP (occurrence: JP)
  Receive Date: 20121112
  Receipt Date: 20121119
  Transmission Date: 20130627
  Serious: Yes (Other)
  Sender: FDA-Public Use
  Company Number: JP-ASTELLAS-2012US010943

PATIENT
  Age: 43 Year
  Sex: Male

DRUGS (2)
  1. AMBISOME [Suspect]
     Indication: ASPERGILLOSIS
     Dosage: 2.5 mg, UID/QD
     Route: 041
     Dates: start: 20121005, end: 20121005
  2. URINMET [Concomitant]
     Indication: PRODUCT USED FOR UNKNOWN INDICATION
     Dosage: UNK
     Route: 065

REACTIONS (1)
  - Shock [Recovered/Resolved]
